FAERS Safety Report 5885479-0 (Version None)
Quarter: 2008Q3

REPORT INFORMATION
  Report Type: 
  Country: None (occurrence: None)
  Receive Date: 20080916
  Receipt Date: 20080903
  Transmission Date: 20090109
  Serious: Yes (Other)
  Sender: FDA-Public Use
  Company Number: US-ELI_LILLY_AND_COMPANY-US200809000992

PATIENT
  Age: 9 Year
  Sex: Male
  Weight: 29.932 kg

DRUGS (5)
  1. PROZAC [Suspect]
     Indication: DEPRESSION
     Dosage: 10 MG, DAILY (1/D)
     Route: 065
     Dates: start: 20080624
  2. DEXTROAMPHETAMINE SULFATE [Concomitant]
     Indication: ATTENTION DEFICIT/HYPERACTIVITY DISORDER
     Dosage: 50 MG, DAILY (1/D)
     Route: 048
     Dates: start: 20080728, end: 20080729
  3. WELLBUTRIN [Concomitant]
     Indication: DEPRESSION
     Dosage: 100 MG, DAILY (1/D)
     Route: 065
  4. WELLBUTRIN [Concomitant]
     Dosage: UNK, 2/D
     Route: 065
     Dates: end: 20080624
  5. BENADRYL [Concomitant]
     Dosage: 25 MG, UNKNOWN
     Route: 065

REACTIONS (7)
  - ABNORMAL BEHAVIOUR [None]
  - ANXIETY [None]
  - DRUG INTERACTION [None]
  - EXTRAPYRAMIDAL DISORDER [None]
  - HOMICIDAL IDEATION [None]
  - PERSECUTORY DELUSION [None]
  - RESTLESSNESS [None]
